FAERS Safety Report 6726491-9 (Version None)
Quarter: 2010Q2

REPORT INFORMATION
  Report Type: 
  Country: None (occurrence: None)
  Receive Date: 20100514
  Receipt Date: 20100503
  Transmission Date: 20101027
  Serious: Yes (Hospitalization, Other)
  Sender: FDA-Public Use
  Company Number: US-ROCHE-692322

PATIENT
  Sex: Female

DRUGS (6)
  1. PEGASYS [Suspect]
     Indication: HEPATITIS C
     Route: 058
     Dates: start: 20100226
  2. PEGASYS [Suspect]
     Route: 058
     Dates: start: 20100409
  3. COPEGUS [Suspect]
     Indication: HEPATITIS C
     Route: 048
     Dates: start: 20100226
  4. COPEGUS [Suspect]
     Route: 048
  5. PAXIL [Concomitant]
     Dates: start: 20090101
  6. NEXIUM [Concomitant]
     Dates: start: 20100310

REACTIONS (13)
  - ANAEMIA [None]
  - ASTHENIA [None]
  - CHEST PAIN [None]
  - CHOLELITHIASIS [None]
  - DRY SKIN [None]
  - DYSPNOEA [None]
  - FATIGUE [None]
  - GALLBLADDER POLYP [None]
  - INFECTION [None]
  - NAUSEA [None]
  - ODYNOPHAGIA [None]
  - PYREXIA [None]
  - WHITE BLOOD CELL COUNT DECREASED [None]
